FAERS Safety Report 17707963 (Version 1)
Quarter: 2020Q2

REPORT INFORMATION
  Report Type: Spontaneous
  Country: JP (occurrence: JP)
  Receive Date: 20200425
  Receipt Date: 20200425
  Transmission Date: 20200714
  Serious: Yes (Hospitalization, Other)
  Sender: FDA-Public Use
  Company Number: JP-ROCHE-2422301

PATIENT
  Age: 7 Decade
  Sex: Female
  Weight: 45 kg

DRUGS (3)
  1. HERCEPTIN [Suspect]
     Active Substance: TRASTUZUMAB
     Indication: BREAST CANCER
     Route: 041
     Dates: start: 20190904, end: 20190904
  2. ARIMIDEX [Concomitant]
     Active Substance: ANASTROZOLE
     Dosage: DOSAGE IS UNCERTAIN.
     Route: 065
     Dates: start: 20151127
  3. ALFAROL [Concomitant]
     Active Substance: ALFACALCIDOL
     Dosage: DOSAGE IS UNCERTAIN.
     Route: 065
     Dates: start: 20160108

REACTIONS (9)
  - Diarrhoea [Recovering/Resolving]
  - Respiratory failure [Unknown]
  - Cholangitis [Unknown]
  - Ileus paralytic [Recovered/Resolved]
  - Decreased appetite [Recovered/Resolved]
  - Vascular device infection [Unknown]
  - Melaena [Unknown]
  - Vomiting [Recovering/Resolving]
  - Pneumothorax [Unknown]

NARRATIVE: CASE EVENT DATE: 20190906
